FAERS Safety Report 14332273 (Version 2)
Quarter: 2018Q3

REPORT INFORMATION
  Report Type: Report from Study
  Country: US (occurrence: US)
  Receive Date: 20171228
  Receipt Date: 20180701
  Transmission Date: 20181010
  Serious: No
  Sender: FDA-Public Use
  Company Number: PHEH2017US041700

PATIENT
  Sex: Male

DRUGS (1)
  1. ENTRESTO [Suspect]
     Active Substance: SACUBITRIL\VALSARTAN
     Indication: CARDIAC FAILURE
     Dosage: 1 DF (24 MG SACUBITRIL AND 26 MG VALSARTAN), UNK
     Route: 048

REACTIONS (4)
  - Dyspnoea [Unknown]
  - Gout [Unknown]
  - Hypotension [Recovering/Resolving]
  - Dizziness [Recovering/Resolving]
